FAERS Safety Report 7820349-X (Version None)
Quarter: 2011Q4

REPORT INFORMATION
  Report Type: 
  Country: None (occurrence: None)
  Receive Date: 20111018
  Receipt Date: 20110925
  Transmission Date: 20120403
  Serious: Yes (Other)
  Sender: FDA-Public Use
  Company Number: US-ROCHE-797746

PATIENT
  Sex: Female

DRUGS (3)
  1. PEG-INTERFERON ALFA 2A [Suspect]
     Indication: HEPATITIS C
     Route: 065
  2. TELAPREVIR [Concomitant]
     Indication: HEPATITIS C
     Dates: start: 20110817
  3. COPEGUS [Suspect]
     Indication: HEPATITIS C
     Dosage: DIVIDED DOSES
     Route: 065

REACTIONS (9)
  - ARTHRALGIA [None]
  - DISABILITY [None]
  - RASH [None]
  - CONTUSION [None]
  - PAIN [None]
  - SENSITIVITY OF TEETH [None]
  - FULL BLOOD COUNT DECREASED [None]
  - LYMPHADENOPATHY [None]
  - SINUSITIS [None]
